FAERS Safety Report 4279249-7 (Version None)
Quarter: 2004Q1

REPORT INFORMATION
  Report Type: 
  Country: None (occurrence: None)
  Receive Date: 20040122
  Receipt Date: 20040114
  Transmission Date: 20041129
  Serious: Yes (Other)
  Sender: FDA-Public Use
  Company Number: 2004194569GB

PATIENT
  Age: 37 Year
  Sex: Female

DRUGS (2)
  1. CABERGOLINE [Suspect]
     Indication: PARKINSON'S DISEASE
     Dosage: 2 MG, BID, ORAL
     Route: 048
  2. SINEMET [Suspect]
     Indication: PARKINSON'S DISEASE
     Dosage: FIVE TIMES DAILY
     Dates: start: 19980101

REACTIONS (4)
  - CAESAREAN SECTION [None]
  - MATERNAL DRUGS AFFECTING FOETUS [None]
  - PREMATURE BABY [None]
  - PREMATURE SEPARATION OF PLACENTA [None]
